FAERS Safety Report 12874552 (Version 4)
Quarter: 2017Q1

REPORT INFORMATION
  Report Type: Spontaneous
  Country: US (occurrence: US)
  Receive Date: 20161021
  Receipt Date: 20170105
  Transmission Date: 20170428
  Serious: No
  Sender: FDA-Public Use
  Company Number: US-PFIZER INC-2016487396

PATIENT
  Age: 56 Year
  Sex: Female

DRUGS (35)
  1. CLONAZEPAM. [Concomitant]
     Active Substance: CLONAZEPAM
     Indication: MUSCLE TWITCHING
  2. PROMETHAZINE [Concomitant]
     Active Substance: PROMETHAZINE\PROMETHAZINE HYDROCHLORIDE
     Indication: NAUSEA
     Dosage: 25 MG, AS NEEDED (EVERY 4 HOURS )
     Route: 048
     Dates: start: 20070417
  3. NORTRIPTYLINE HCL [Concomitant]
     Active Substance: NORTRIPTYLINE HYDROCHLORIDE
     Dosage: 20 MG, 2X/DAY
     Route: 048
  4. CALTRATE 600+D [Concomitant]
     Indication: OSTEOPENIA
     Dosage: 2 DF, DAILY
  5. CENTRUM FOR WOMEN [Concomitant]
     Active Substance: VITAMINS
     Dosage: 1 DF, 1X/DAY (WITH DINNER)
  6. VITAMIN E [Concomitant]
     Active Substance: .ALPHA.-TOCOPHEROL
     Dosage: 400 IU, DAILY (WITH DINNER)
  7. L-LYSINE [Concomitant]
     Active Substance: LYSINE
     Dosage: 2000 MG, 1X/DAY ( 2 TABLET EACH MORNING)
  8. B-100 [Concomitant]
     Dosage: 1 DF, 1X/DAY (WITH DINNER)
  9. LYRICA [Suspect]
     Active Substance: PREGABALIN
     Dosage: 50 MG, 2X/DAY
     Route: 048
  10. CLONAZEPAM. [Concomitant]
     Active Substance: CLONAZEPAM
     Indication: ANXIETY
     Dosage: 0.5 MG, AS NEEDED (3 TIMES A DAY )
     Route: 048
  11. ESTRACE [Concomitant]
     Active Substance: ESTRADIOL
     Dosage: 1 G, WEEKLY
     Route: 067
  12. CALTRATE 600+D [Concomitant]
     Indication: OSTEOPOROSIS
  13. MECLIZINE [Concomitant]
     Active Substance: MECLIZINE HYDROCHLORIDE
     Indication: VERTIGO
     Dosage: 25 MG, AS NEEDED (DO NOT TAKE IF TAKING ZYRTEC)
     Dates: start: 20090925
  14. PRAVASTATIN SODIUM. [Concomitant]
     Active Substance: PRAVASTATIN SODIUM
     Dosage: 20 MG, 1X/DAY (AT BED TIME)
     Dates: start: 20080807
  15. DENAVIR [Concomitant]
     Active Substance: PENCICLOVIR
     Dosage: UNK (APPLY TOPICALLY TO THE AFFECTED AREA ), AS NEEDED
     Route: 061
  16. PROBIOTIC ACIDOPHILUS [Concomitant]
     Active Substance: LACTOBACILLUS ACIDOPHILUS
     Dosage: 2 DF, DAILY (WITH DINNER)
  17. CLONAZEPAM. [Concomitant]
     Active Substance: CLONAZEPAM
     Indication: STRESS
  18. CLONAZEPAM. [Concomitant]
     Active Substance: CLONAZEPAM
     Indication: RESTLESS LEGS SYNDROME
  19. LISINOPRIL. [Concomitant]
     Active Substance: LISINOPRIL
     Dosage: 10 MG, 1X/DAY (1 AT BEDTIME)
  20. TOPIRAMATE. [Concomitant]
     Active Substance: TOPIRAMATE
     Dosage: 50 MG, 2X/DAY
     Route: 048
     Dates: start: 20070730
  21. TIMOLOL MALEATE. [Concomitant]
     Active Substance: TIMOLOL MALEATE
     Indication: GLAUCOMA
     Dosage: 1 GTT, 1X/DAY (EVERY MORNING)
     Dates: start: 20140403
  22. MEDROXYPROGESTERONE ACETATE. [Concomitant]
     Active Substance: MEDROXYPROGESTERONE ACETATE
     Dosage: 2.5 MG, 1X/DAY (AT BED TIME) (EVERY OTHER DAY FOR 6 MONTHS)
  23. ESTRADIOL. [Concomitant]
     Active Substance: ESTRADIOL
     Dosage: 1 MG, UNK
     Dates: start: 20160309
  24. ESTRADIOL. [Concomitant]
     Active Substance: ESTRADIOL
     Dosage: .5 MG, 1X/DAY (AT BEDTIME) (EVERY OTHER DAY FOR 6 MONTHS)
     Dates: start: 20160824
  25. BENADRYL [Concomitant]
     Active Substance: DIPHENHYDRAMINE HYDROCHLORIDE
     Dosage: 25 MG, 1X/DAY (AT BEDTIME)
  26. ASPIRIN. [Concomitant]
     Active Substance: ASPIRIN
     Dosage: 325 MG, 1X/DAY (AT BED TIME)
  27. LYRICA [Suspect]
     Active Substance: PREGABALIN
     Dosage: 50 MG, 1X/DAY (CURRENTLY TAKING 50 MG IN A.M. UNTIL SHE RUNS OUT )
     Route: 048
  28. HUMALOG [Concomitant]
     Active Substance: INSULIN LISPRO
     Dosage: UNK
  29. ESTRADIOL. [Concomitant]
     Active Substance: ESTRADIOL
     Dosage: 2 MG, UNK
  30. BACLOFEN. [Concomitant]
     Active Substance: BACLOFEN
     Dosage: (TAKE 1-2 TAB(S) 4 TIMES A DAY-MAX 8 TABLETS DAILY), 4X/DAY
  31. LYRICA [Suspect]
     Active Substance: PREGABALIN
     Dosage: 50 MG, 2X/DAY (MAX SHE CAN TOLERATE)
     Route: 048
     Dates: start: 20140307
  32. BUTALBITAL APAP CAFFEINE [Concomitant]
     Indication: MIGRAINE
     Dosage: 1 DF, AS NEEDED (BUTALBITAL: 50 MG, CAFFEINE: 40 MG, PARACETAMOL: 325 MG) (TRY NOT TO EXCEED 1/DAY )
     Dates: start: 20070713
  33. GENTLE IRON [Concomitant]
     Dosage: 28 MG, (2 DAYS PER WEEK: 1 TABLET MONDAY + THURSDAY WITH DINNER)
  34. ZINC. [Concomitant]
     Active Substance: ZINC
     Dosage: 50 MG, DAILY  (WITH DINNER)
  35. VITAMIN C [Concomitant]
     Active Substance: ASCORBIC ACID
     Dosage: 500 MG, DAILY (WITH DINNER)

REACTIONS (2)
  - Intentional product use issue [Unknown]
  - Drug intolerance [Unknown]
